FAERS Safety Report 6140345-0 (Version None)
Quarter: 2009Q1

REPORT INFORMATION
  Report Type: 
  Country: None (occurrence: None)
  Receive Date: 20090324
  Receipt Date: 20090319
  Transmission Date: 20090719
  Serious: Yes (Other)
  Sender: FDA-Public Use
  Company Number: POMP-1000543

PATIENT
  Age: 4 Year
  Sex: Female

DRUGS (1)
  1. MYOZYME [Suspect]
     Indication: GLYCOGEN STORAGE DISEASE TYPE II
     Dosage: 20 MG/KG, Q2W, INTRAVENOUS
     Route: 042
     Dates: start: 20050802

REACTIONS (16)
  - ANAEMIA [None]
  - ASCITES [None]
  - BLOOD GASES ABNORMAL [None]
  - CANDIDIASIS [None]
  - CHOLELITHIASIS [None]
  - DIARRHOEA [None]
  - HEPATIC FUNCTION ABNORMAL [None]
  - HUMERUS FRACTURE [None]
  - HYPERCAPNIA [None]
  - HYPOALBUMINAEMIA [None]
  - IMPAIRED GASTRIC EMPTYING [None]
  - LOBAR PNEUMONIA [None]
  - RESPIRATORY FAILURE [None]
  - UPPER GASTROINTESTINAL HAEMORRHAGE [None]
  - URINARY TRACT INFECTION [None]
  - VAGINAL INFECTION [None]
